FAERS Safety Report 23522046 (Version 2)
Quarter: 2024Q1

REPORT INFORMATION
  Report Type: Spontaneous
  Country: CA (occurrence: CA)
  Receive Date: 20240214
  Receipt Date: 20240216
  Transmission Date: 20240410
  Serious: Yes (Other)
  Sender: FDA-Public Use
  Company Number: CA-VIIV HEALTHCARE LIMITED-CA2024010062

PATIENT
  Age: 65 Year
  Sex: Male

DRUGS (2)
  1. RILPIVIRINE [Suspect]
     Active Substance: RILPIVIRINE
     Indication: HIV infection
     Dosage: UNK, Q2M, CABOTEGRAVIR 600MG/3ML RILPIVIRINE 900MG/3ML
     Route: 030
     Dates: start: 20240110
  2. CABOTEGRAVIR [Suspect]
     Active Substance: CABOTEGRAVIR
     Indication: HIV infection
     Dosage: UNK, Q2M, CABOTEGRAVIR 600MG/3ML RILPIVIRINE 900MG/3ML
     Route: 030
     Dates: start: 20240110

REACTIONS (6)
  - Muscle rupture [Unknown]
  - Injection site pain [Recovered/Resolved]
  - Gait disturbance [Unknown]
  - Muscle tightness [Unknown]
  - Fall [Unknown]
  - Limb injury [Unknown]
